FAERS Safety Report 5430379-3 (Version None)
Quarter: 2007Q3

REPORT INFORMATION
  Report Type: 
  Country: None (occurrence: None)
  Receive Date: 20070828
  Receipt Date: 20070821
  Transmission Date: 20080115
  Serious: Yes (Disabling, Other)
  Sender: FDA-Public Use
  Company Number: 156799ISR

PATIENT
  Age: 32 Year
  Sex: Female

DRUGS (1)
  1. CITALOPRAM HYDROBROMIDE [Suspect]
     Indication: DEPRESSION
     Dosage: 40 MG (20 MG, 2 IN 1 D) , ORAL
     Route: 048
     Dates: start: 20050501, end: 20070128

REACTIONS (2)
  - VISUAL DISTURBANCE [None]
  - VISUAL FIELD DEFECT [None]
